FAERS Safety Report 21775568 (Version 2)
Quarter: 2023Q1

REPORT INFORMATION
  Report Type: Spontaneous
  Country: US (occurrence: US)
  Receive Date: 20221226
  Receipt Date: 20230110
  Transmission Date: 20230417
  Serious: Yes (Other)
  Sender: FDA-Public Use
  Company Number: US-009507513-2212USA007633

PATIENT
  Age: 37 Year
  Sex: Female

DRUGS (3)
  1. KEYTRUDA [Suspect]
     Active Substance: PEMBROLIZUMAB
     Indication: Breast cancer
     Dosage: UNK, EVERY 3 WEEKS, ROUTE OF ADMINISTRATION: INFUSION
     Dates: start: 20220303, end: 20220303
  2. KEYTRUDA [Suspect]
     Active Substance: PEMBROLIZUMAB
     Dosage: UNK
     Dates: start: 20220907
  3. LEVOTHYROXINE [Concomitant]
     Active Substance: LEVOTHYROXINE

REACTIONS (8)
  - Radiotherapy [Unknown]
  - Blindness [Unknown]
  - Surgery [Unknown]
  - Rash [Recovered/Resolved]
  - Joint swelling [Unknown]
  - Joint lock [Unknown]
  - Gait disturbance [Unknown]
  - Joint effusion [Unknown]

NARRATIVE: CASE EVENT DATE: 20220101
